FAERS Safety Report 13511772 (Version 1)
Quarter: 2017Q2

REPORT INFORMATION
  Report Type: Spontaneous
  Country: US (occurrence: US)
  Receive Date: 20170504
  Receipt Date: 20170504
  Transmission Date: 20170830
  Serious: No
  Sender: FDA-Public Use
  Company Number: US-TEVA-765357ACC

PATIENT
  Age: 46 Year
  Sex: Female
  Weight: 63.56 kg

DRUGS (2)
  1. PLAN B ONE-STEP [Suspect]
     Active Substance: LEVONORGESTREL
     Indication: POST COITAL CONTRACEPTION
     Dates: start: 20170424, end: 20170424
  2. OVER-THE-COUNTER VITAMIN D WITH CALCIUM [Concomitant]
     Indication: BLOOD CALCIUM DECREASED

REACTIONS (3)
  - Abdominal distension [Not Recovered/Not Resolved]
  - Fatigue [Unknown]
  - Dysmenorrhoea [Recovered/Resolved]

NARRATIVE: CASE EVENT DATE: 20170425
